FAERS Safety Report 9813756 (Version 1)
Quarter: 2014Q1

REPORT INFORMATION
  Report Type: Spontaneous
  Country: US (occurrence: US)
  Receive Date: 20140113
  Receipt Date: 20140113
  Transmission Date: 20141002
  Serious: No
  Sender: FDA-Public Use
  Company Number: US-GILEAD-2014-0091509

PATIENT
  Age: 84 Year
  Sex: Female

DRUGS (2)
  1. RANEXA [Suspect]
     Indication: CHEST PAIN
     Dosage: 500 MG, BID
     Route: 048
     Dates: start: 2012
  2. RANEXA [Suspect]
     Dosage: 500 MG, QD
     Route: 048
     Dates: start: 2013

REACTIONS (3)
  - Throat irritation [Unknown]
  - Abdominal pain upper [Unknown]
  - Abdominal pain upper [Unknown]
